FAERS Safety Report 7548205-5 (Version None)
Quarter: 2011Q2

REPORT INFORMATION
  Report Type: 
  Country: None (occurrence: None)
  Receive Date: 20110615
  Receipt Date: 20110523
  Transmission Date: 20111010
  Serious: Yes (Hospitalization, Other)
  Sender: FDA-Public Use
  Company Number: US-BAYER-201025147NA

PATIENT
  Age: 21 Year
  Sex: Female
  Weight: 93 kg

DRUGS (2)
  1. LOESTRIN 1.5/30 [Concomitant]
     Dosage: UNK
     Dates: start: 20091101
  2. YAZ [Suspect]
     Indication: ORAL CONTRACEPTION
     Route: 048
     Dates: start: 20080301, end: 20091001

REACTIONS (2)
  - CHOLECYSTITIS CHRONIC [None]
  - CHOLELITHIASIS [None]
